FAERS Safety Report 4433323-0 (Version None)
Quarter: 2004Q3

REPORT INFORMATION
  Report Type: 
  Country: None (occurrence: None)
  Receive Date: 20040826
  Receipt Date: 20040701
  Transmission Date: 20050211
  Serious: Yes (Life-Threatening, Hospitalization)
  Sender: FDA-Public Use
  Company Number: 200412628FR

PATIENT
  Age: 66 Year
  Sex: Female
  Weight: 62 kg

DRUGS (6)
  1. ARAVA [Suspect]
     Indication: RHEUMATOID ARTHRITIS
     Route: 048
     Dates: start: 20040315
  2. CELEBREX [Suspect]
     Route: 048
     Dates: end: 20040624
  3. PROPOFAN/FRANCE [Concomitant]
     Route: 048
  4. PLAVIX [Concomitant]
     Route: 048
  5. ELISOR [Concomitant]
     Route: 048
  6. ISOPTIN [Concomitant]
     Route: 048

REACTIONS (3)
  - CARDIOMEGALY [None]
  - CONGESTIVE CARDIOMYOPATHY [None]
  - VENTRICULAR HYPOKINESIA [None]
